FAERS Safety Report 10366986 (Version 1)
Quarter: 2014Q3

REPORT INFORMATION
  Report Type: Report from Study
  Country: US (occurrence: US)
  Receive Date: 20140807
  Receipt Date: 20140807
  Transmission Date: 20150326
  Serious: Yes (Hospitalization)
  Sender: FDA-Public Use
  Company Number: US-BIOGENIDEC-2014BI075241

PATIENT
  Age: 47 Year
  Sex: Female

DRUGS (3)
  1. AVONEX [Suspect]
     Active Substance: INTERFERON BETA-1A
     Indication: MULTIPLE SCLEROSIS
     Route: 030
     Dates: start: 20120720
  2. AVONEX [Suspect]
     Active Substance: INTERFERON BETA-1A
     Indication: MULTIPLE SCLEROSIS
     Route: 030
  3. AVONEX [Suspect]
     Active Substance: INTERFERON BETA-1A
     Indication: MULTIPLE SCLEROSIS
     Route: 030
     Dates: start: 19980707

REACTIONS (10)
  - Finger deformity [Unknown]
  - Vaginal prolapse [Recovered/Resolved]
  - Rectal prolapse [Recovered/Resolved]
  - Carpal tunnel syndrome [Recovered/Resolved]
  - Multiple sclerosis relapse [Unknown]
  - Balance disorder [Unknown]
  - Mobility decreased [Unknown]
  - Hand fracture [Unknown]
  - Arthropathy [Unknown]
  - Trigger finger [Unknown]

NARRATIVE: CASE EVENT DATE: 2010
